FAERS Safety Report 22595383 (Version 1)
Quarter: 2023Q2

REPORT INFORMATION
  Report Type: Spontaneous
  Country: US (occurrence: US)
  Receive Date: 20230613
  Receipt Date: 20230613
  Transmission Date: 20230721
  Serious: Yes (Other)
  Sender: FDA-Public Use
  Company Number: US-SA-SAC20230612000180

PATIENT
  Age: 29 Year
  Sex: Male

DRUGS (4)
  1. ELOCTATE [Suspect]
     Active Substance: EFMOROCTOCOG ALFA
     Indication: Factor VIII deficiency
     Dosage: 2300 U, BIW
     Route: 065
     Dates: start: 202304
  2. ELOCTATE [Suspect]
     Active Substance: EFMOROCTOCOG ALFA
     Indication: Factor VIII deficiency
     Dosage: 2300 U, BIW
     Route: 065
     Dates: start: 202304
  3. ELOCTATE [Suspect]
     Active Substance: EFMOROCTOCOG ALFA
     Dosage: 2300 U, PRN (EVERY 24 HOURS AS NEEDED FOR BLEED)
     Route: 065
     Dates: start: 202304
  4. ELOCTATE [Suspect]
     Active Substance: EFMOROCTOCOG ALFA
     Dosage: 2300 U, PRN (EVERY 24 HOURS AS NEEDED FOR BLEED)
     Route: 065
     Dates: start: 202304

REACTIONS (2)
  - Haemarthrosis [Recovered/Resolved]
  - Condition aggravated [Recovered/Resolved]

NARRATIVE: CASE EVENT DATE: 20230605
